FAERS Safety Report 25937454 (Version 1)
Quarter: 2025Q4

REPORT INFORMATION
  Report Type: Report from Study
  Country: US (occurrence: US)
  Receive Date: 20251018
  Receipt Date: 20251018
  Transmission Date: 20260118
  Serious: Yes (Hospitalization)
  Sender: TEVA
  Company Number: US-TEVA-VS-3382709

PATIENT

DRUGS (1)
  1. TREPROSTINIL [Suspect]
     Active Substance: TREPROSTINIL
     Indication: Pulmonary hypertension
     Dosage: RECEIVED ONE DOSE OF NEBULISED TREPROSTINIL 18?G (THREE BREATHS) EVERY 6 H
     Route: 055

REACTIONS (1)
  - Bronchopulmonary dysplasia [Unknown]
